FAERS Safety Report 8287515-3 (Version None)
Quarter: 2012Q2

REPORT INFORMATION
  Report Type: 
  Country: None (occurrence: None)
  Receive Date: 20120416
  Receipt Date: 20120402
  Transmission Date: 20120825
  Serious: Yes (Other)
  Sender: FDA-Public Use
  Company Number: BR-AMGEN-BRASP2012015730

PATIENT
  Age: 31 Year
  Sex: Female
  Weight: 61 kg

DRUGS (6)
  1. PREDNISONE TAB [Concomitant]
     Dosage: 5 MG, 1X/DAY
     Dates: start: 20110901
  2. METHOTREXATE [Concomitant]
     Dosage: 7.5 MG, WEEKLY
     Dates: start: 20111001
  3. NIMESULIDE [Concomitant]
     Indication: PAIN
     Dosage: 100 MG, 1X/DAY
     Dates: start: 20110801
  4. FOLIC ACID [Concomitant]
     Dosage: UNK
  5. ENBREL [Suspect]
     Indication: ANKYLOSING SPONDYLITIS
     Dosage: 50 MG, QWK
     Route: 058
     Dates: start: 20120119
  6. OMEPRAZOLE [Concomitant]
     Indication: GASTRIC DISORDER
     Dosage: 20 MG, 1X/DAY
     Dates: start: 20110801

REACTIONS (9)
  - EYE IRRITATION [None]
  - VOMITING [None]
  - TONGUE DISORDER [None]
  - APTYALISM [None]
  - VIRAL INFECTION [None]
  - BONE PAIN [None]
  - ANKYLOSING SPONDYLITIS [None]
  - SPEECH DISORDER [None]
  - PYREXIA [None]
